FAERS Safety Report 21710908 (Version 2)
Quarter: 2023Q1

REPORT INFORMATION
  Report Type: Spontaneous
  Country: US (occurrence: US)
  Receive Date: 20221212
  Receipt Date: 20230228
  Transmission Date: 20230418
  Serious: No
  Sender: FDA-Public Use
  Company Number: US-BRISTOL-MYERS SQUIBB COMPANY-2022-151217

PATIENT
  Age: 84 Year
  Sex: Male

DRUGS (1)
  1. OPDUALAG [Suspect]
     Active Substance: NIVOLUMAB\RELATLIMAB-RMBW
     Indication: Product used for unknown indication
     Dosage: STRENGTH + DOSE: 480MG INFUSION?STRENGTH AND PRESENTATION OF THE AE : 480MG INFUSION

REACTIONS (4)
  - Myalgia [Unknown]
  - Vitreous floaters [Unknown]
  - Arthralgia [Unknown]
  - Pruritus [Unknown]
